FAERS Safety Report 5906982-0 (Version None)
Quarter: 2008Q4

REPORT INFORMATION
  Report Type: 
  Country: None (occurrence: None)
  Receive Date: 20081002
  Receipt Date: 20081002
  Transmission Date: 20090506
  Serious: No
  Sender: FDA-Public Use
  Company Number: None

PATIENT
  Age: 62 Year
  Sex: Female
  Weight: 52 kg

DRUGS (1)
  1. LYRICA [Suspect]
     Indication: FIBROMYALGIA
     Dosage: TOOK JUST ONE PILL

REACTIONS (10)
  - ABDOMINAL PAIN UPPER [None]
  - ANXIETY [None]
  - FEAR [None]
  - HALLUCINATION, VISUAL [None]
  - NECK PAIN [None]
  - NIGHTMARE [None]
  - PAIN [None]
  - SLEEP TERROR [None]
  - SUDDEN ONSET OF SLEEP [None]
  - VOMITING [None]
